FAERS Safety Report 15935188 (Version 2)
Quarter: 2019Q1

REPORT INFORMATION
  Report Type: Spontaneous
  Country: US (occurrence: US)
  Receive Date: 20190207
  Receipt Date: 20190218
  Transmission Date: 20190417
  Serious: No
  Sender: FDA-Public Use
  Company Number: US-AMGEN INC.-USASP2019017300

PATIENT
  Age: 81 Year
  Sex: Male
  Weight: 73.47 kg

DRUGS (4)
  1. OXYCODONE [Concomitant]
     Active Substance: OXYCODONE
     Indication: MIGRAINE
     Dosage: 15 MG, QD (AVERAGING ABOUT 4 DOSES A DAY)
  2. FENTANYL. [Concomitant]
     Active Substance: FENTANYL
     Indication: MIGRAINE
     Dosage: 50 MG, UNK (PATCH)
  3. AIMOVIG [Suspect]
     Active Substance: ERENUMAB-AOOE
     Indication: MIGRAINE
     Dosage: 70 MG, QMO
     Route: 065
     Dates: start: 201807, end: 201812
  4. AIMOVIG [Suspect]
     Active Substance: ERENUMAB-AOOE
     Dosage: 140 MG, QMO
     Route: 065
     Dates: start: 201812

REACTIONS (3)
  - Drug effect decreased [Unknown]
  - Product storage error [Unknown]
  - Migraine [Not Recovered/Not Resolved]

NARRATIVE: CASE EVENT DATE: 201811
